FAERS Safety Report 9723197 (Version 1)
Quarter: 2013Q4

REPORT INFORMATION
  Report Type: Spontaneous
  Country: GB (occurrence: None)
  Receive Date: 20131126
  Receipt Date: 20131126
  Transmission Date: 20140711
  Serious: Yes (Hospitalization, Other)
  Sender: FDA-Public Use
  Company Number: FK201305024

PATIENT
  Age: 91 Year
  Sex: Female
  Weight: 48 kg

DRUGS (6)
  1. FUROSEMIDE (MANUFACTURER UNKNOWN) (FUROSEMIDE) (FUROSEMIDE) [Suspect]
     Indication: PRODUCT USED FOR UNKNOWN INDICATION
     Route: 048
     Dates: end: 20100829
  2. INDAPAMIDE (INDAPAMIDE) [Suspect]
     Indication: HYPERTENSION
     Route: 048
     Dates: end: 20100829
  3. ASPIRIN (ACETYLASALICYCLIC ACID) [Concomitant]
  4. NEBIVOLOL (NEBIVOLOL) [Concomitant]
  5. NIFEDIPINE (NIFEDIPINE) (NIFEDIPINE) [Concomitant]
  6. SENNA (SENNA ALEXANDRINA) [Concomitant]

REACTIONS (4)
  - Confusional state [None]
  - Fall [None]
  - Hyponatraemia [None]
  - Lethargy [None]
